FAERS Safety Report 12670231 (Version 1)
Quarter: 2016Q3

REPORT INFORMATION
  Report Type: Spontaneous
  Country: US (occurrence: US)
  Receive Date: 20160821
  Receipt Date: 20160821
  Transmission Date: 20161109
  Serious: No
  Sender: FDA-Public Use
  Company Number: US-CELGENEUS-USA-2016072891

PATIENT
  Age: 78 Year
  Sex: Male
  Weight: 80.81 kg

DRUGS (2)
  1. POMALYST [Suspect]
     Active Substance: POMALIDOMIDE
     Indication: PLASMA CELL MYELOMA
     Route: 048
     Dates: start: 20160120
  2. POMALYST [Suspect]
     Active Substance: POMALIDOMIDE
     Route: 048
     Dates: start: 201604

REACTIONS (9)
  - Cough [Unknown]
  - Arthritis [Unknown]
  - Chills [Unknown]
  - Back pain [Unknown]
  - Pyrexia [Unknown]
  - Productive cough [Unknown]
  - Constipation [Unknown]
  - Sinus disorder [Unknown]
  - Fatigue [Unknown]

NARRATIVE: CASE EVENT DATE: 201607
